FAERS Safety Report 5074513-6 (Version None)
Quarter: 2006Q3

REPORT INFORMATION
  Report Type: 
  Country: None (occurrence: None)
  Receive Date: 20060803
  Receipt Date: 20060720
  Transmission Date: 20061208
  Serious: Yes (Hospitalization)
  Sender: FDA-Public Use
  Company Number: US017963

PATIENT
  Age: 58 Year
  Sex: Female
  Weight: 58.514 kg

DRUGS (3)
  1. PROVIGIL [Suspect]
     Indication: DEPRESSION
     Dosage: 100 MG QAM ORAL
     Route: 048
     Dates: start: 20060710, end: 20060714
  2. PROVIGIL [Suspect]
     Indication: FATIGUE
     Dosage: 100 MG QAM ORAL
     Route: 048
     Dates: start: 20060710, end: 20060714
  3. ZANTAC [Concomitant]

REACTIONS (5)
  - BLOOD PRESSURE INCREASED [None]
  - CEREBROVASCULAR ACCIDENT [None]
  - HEADACHE [None]
  - HEMIPARESIS [None]
  - INSOMNIA [None]
